FAERS Safety Report 6763420-6 (Version None)
Quarter: 2010Q2

REPORT INFORMATION
  Report Type: 
  Country: None (occurrence: None)
  Receive Date: 20100610
  Receipt Date: 20100601
  Transmission Date: 20101027
  Serious: Yes (Other)
  Sender: FDA-Public Use
  Company Number: US-BAYER-201024835NA

PATIENT
  Sex: Female

DRUGS (2)
  1. NEXAVAR [Suspect]
     Indication: SARCOMA
  2. SIROLIMUS [Concomitant]

REACTIONS (2)
  - PNEUMOTHORAX [None]
  - PULMONARY CAVITATION [None]
